FAERS Safety Report 4312118-2 (Version None)
Quarter: 2004Q1

REPORT INFORMATION
  Report Type: 
  Country: None (occurrence: None)
  Receive Date: 20040303
  Receipt Date: 52000225
  Transmission Date: 20041129
  Serious: Yes (Death, Life-Threatening)
  Sender: FDA-Public Use
  Company Number: 2004-112259-NL

PATIENT
  Age: 64 Year
  Sex: Female

DRUGS (16)
  1. ORGARAN [Suspect]
     Indication: DISSEMINATED INTRAVASCULAR COAGULATION
     Dosage: 1250 ANTI_XA QD/2500 ANTI_XA
     Route: 042
     Dates: start: 20031201, end: 20031201
  2. ORGARAN [Suspect]
     Indication: DISSEMINATED INTRAVASCULAR COAGULATION
     Dosage: 1250 ANTI_XA QD/2500 ANTI_XA
     Route: 042
     Dates: start: 20031202, end: 20031208
  3. GABEXATE MESILATE [Concomitant]
  4. RIFAMPICIN [Concomitant]
  5. ETHAMBUTOL HCL [Concomitant]
  6. PYRAZINAMIDE [Concomitant]
  7. ISONIAZID [Concomitant]
  8. CIPROFLOXACIN HYDROCHLORIDE [Concomitant]
  9. KAKODIN D [Concomitant]
  10. FAMOTIDINE [Concomitant]
  11. MIDAZOLAM HYDROCHLORIDE [Concomitant]
  12. NONTHRON [Concomitant]
  13. ALBUMIN (HUMAN) [Concomitant]
  14. METHYLPREDNISOLONE SODIUM SUCCINATE [Concomitant]
  15. PFP [Concomitant]
  16. PC [Concomitant]

REACTIONS (5)
  - ACTIVATED PARTIAL THROMBOPLASTIN TIME PROLONGED [None]
  - ANAEMIA [None]
  - INFLAMMATION [None]
  - RESPIRATORY FAILURE [None]
  - WHITE BLOOD CELL COUNT INCREASED [None]
